FAERS Safety Report 5092207-8 (Version None)
Quarter: 2006Q3

REPORT INFORMATION
  Report Type: 
  Country: None (occurrence: None)
  Receive Date: 20060727
  Receipt Date: 20060425
  Transmission Date: 20061208
  Serious: Yes (Other)
  Sender: FDA-Public Use
  Company Number: 2006056703

PATIENT
  Age: 51 Year
  Sex: Female
  Weight: 62.5964 kg

DRUGS (3)
  1. LYRICA [Suspect]
     Indication: MUSCULOSKELETAL PAIN
     Dosage: 100 MG (50 MG, 2 IN 1 D), UNKNOWN
     Dates: start: 20060101
  2. VITAMINS (VITAMINS) [Concomitant]
  3. IBUPROFEN [Concomitant]

REACTIONS (9)
  - DRUG EFFECT DECREASED [None]
  - DRUG INTOLERANCE [None]
  - FACIAL PAIN [None]
  - FATIGUE [None]
  - FEELING OF RELAXATION [None]
  - HEADACHE [None]
  - INCREASED APPETITE [None]
  - MUSCULOSKELETAL PAIN [None]
  - WEIGHT INCREASED [None]
